FAERS Safety Report 9818934 (Version 3)
Quarter: 2014Q1

REPORT INFORMATION
  Report Type: Spontaneous
  Country: FR (occurrence: FR)
  Receive Date: 20140115
  Receipt Date: 20140116
  Transmission Date: 20141002
  Serious: Yes (Hospitalization, Other)
  Sender: FDA-Public Use
  Company Number: FR-PFIZER INC-2013324650

PATIENT
  Age: 68 Year
  Sex: Male
  Weight: 71 kg

DRUGS (13)
  1. LONOTEN [Suspect]
     Indication: HYPERTENSION
     Dosage: 5 MG, 2X/DAY
     Route: 048
     Dates: start: 201307, end: 20131031
  2. CORTANCYL [Concomitant]
     Dosage: 10 MG, DAILY
  3. NEORAL [Concomitant]
     Dosage: 75 MG, 2X/DAY
  4. CELLCEPT [Concomitant]
     Dosage: 1 DF, 2X/DAY
  5. KERLONE [Concomitant]
     Dosage: 20 MG, 2X/DAY IN THE MORNING AND IN THE EVENING
  6. EXFORGE [Concomitant]
     Dosage: 1 DF, 1X/DAY
  7. LASILIX [Concomitant]
     Dosage: 80 MG IN THE MORNING AND 40 MG AT NOON
  8. NOVONORM [Concomitant]
     Indication: DIABETES MELLITUS
     Dosage: 0.5 MG IN THE MORNING, 1 MG AT NOON AND 0.5 MG IN THE EVENING
  9. GLUCOPHAGE [Concomitant]
     Indication: DIABETES MELLITUS
     Dosage: 850 MG, 3X/DAY
  10. CRESTOR [Concomitant]
     Dosage: 10 MG
  11. EZETROL [Concomitant]
     Dosage: 1 DF, 1X/DAY IN THE EVENING
  12. INEXIUM /01479302/ [Concomitant]
     Dosage: 20 MG, 1X/DAY IN THE EVENING
  13. DIFFU K [Concomitant]
     Dosage: 1 DF, 3X/DAY

REACTIONS (4)
  - Pericardial effusion [Recovered/Resolved with Sequelae]
  - Cardiac failure [Unknown]
  - Atrial fibrillation [Unknown]
  - Ischaemic stroke [Unknown]
